FAERS Safety Report 17611991 (Version 1)
Quarter: 2020Q2

REPORT INFORMATION
  Report Type: Report from Study
  Country: FR (occurrence: FR)
  Receive Date: 20200401
  Receipt Date: 20200401
  Transmission Date: 20200713
  Serious: Yes (Death, Hospitalization)
  Sender: FDA-Public Use
  Company Number: FR-BAYER-2019-218767

PATIENT
  Age: 76 Year
  Sex: Male
  Weight: 57 kg

DRUGS (6)
  1. IMODIUM [Concomitant]
     Active Substance: LOPERAMIDE HYDROCHLORIDE
     Indication: DIARRHOEA
     Dosage: UNK
     Route: 048
     Dates: start: 20191123
  2. REGORAFENIB. [Suspect]
     Active Substance: REGORAFENIB
     Indication: GASTROOESOPHAGEAL CANCER
     Dosage: 160 MG
     Route: 048
     Dates: start: 20191123, end: 20191129
  3. OLANZAPINE. [Concomitant]
     Active Substance: OLANZAPINE
     Indication: NAUSEA
     Dosage: UNK
     Route: 048
     Dates: start: 20191122
  4. IRINOTECAN [Suspect]
     Active Substance: IRINOTECAN
     Indication: GASTROOESOPHAGEAL CANCER
     Dosage: 320 MG
     Route: 042
     Dates: start: 20191122, end: 20191122
  5. INNOHEP [Concomitant]
     Active Substance: TINZAPARIN SODIUM
     Indication: PULMONARY EMBOLISM
     Dosage: UNK
     Route: 058
     Dates: start: 20191119
  6. SMECTA [Concomitant]
     Active Substance: MONTMORILLONITE
     Indication: DIARRHOEA
     Dosage: UNK
     Route: 048
     Dates: start: 20191123

REACTIONS (1)
  - Asthenia [Fatal]

NARRATIVE: CASE EVENT DATE: 20191129
